FAERS Safety Report 7744461-9 (Version None)
Quarter: 2011Q3

REPORT INFORMATION
  Report Type: 
  Country: None (occurrence: None)
  Receive Date: 20110908
  Receipt Date: 20110825
  Transmission Date: 20111222
  Serious: Yes (Hospitalization)
  Sender: FDA-Public Use
  Company Number: 20110619

PATIENT
  Age: 55 Year
  Sex: Female

DRUGS (2)
  1. EPOGEN [Concomitant]
  2. VENOFER [Suspect]
     Indication: PRODUCT USED FOR UNKNOWN INDICATION
     Dosage: 200 MG INTRAVENOUS
     Route: 042
     Dates: start: 20110801, end: 20110801

REACTIONS (2)
  - PALPITATIONS [None]
  - NAUSEA [None]
